FAERS Safety Report 5243013-2 (Version None)
Quarter: 2007Q1

REPORT INFORMATION
  Report Type: 
  Country: None (occurrence: None)
  Receive Date: 20070215
  Receipt Date: 20070209
  Transmission Date: 20070707
  Serious: Yes (Other)
  Sender: FDA-Public Use
  Company Number: 235997

PATIENT
  Age: 45 Year
  Sex: Male

DRUGS (8)
  1. XOLAIR [Suspect]
     Indication: ASTHMA
     Dosage: 300 MG, Q2W, SUBCUTANEOUS
     Route: 058
     Dates: start: 20060106
  2. PREDNISONE [Concomitant]
  3. FLUTICASONE (FLUTICASONE PROPIONATE) [Concomitant]
  4. SALMETEROL [Concomitant]
  5. MONTELUKAST (MONTELUKAST SODIUM) [Concomitant]
  6. IMMUNOTHERAPY (ALLERGENIC EXTRACTS) [Concomitant]
  7. STEROIDS (STEROID NOS) [Concomitant]
  8. XOPENEX [Concomitant]

REACTIONS (1)
  - ALLERGIC GRANULOMATOUS ANGIITIS [None]
